FAERS Safety Report 9402871 (Version 1)
Quarter: 2013Q3

REPORT INFORMATION
  Report Type: Spontaneous
  Country: GB (occurrence: GB)
  Receive Date: 20130716
  Receipt Date: 20130716
  Transmission Date: 20140515
  Serious: Yes (Hospitalization)
  Sender: FDA-Public Use
  Company Number: GB-TEVA-417241ISR

PATIENT
  Age: 28 Year
  Sex: Female

DRUGS (6)
  1. OLANZAPINE [Suspect]
     Dosage: 20 MILLIGRAM DAILY;
     Route: 048
  2. OLANZAPINE [Suspect]
     Dosage: 2.5 MILLIGRAM DAILY;
     Route: 048
  3. FLUOXETINE [Suspect]
     Dosage: 40 MILLIGRAM DAILY;
     Route: 048
  4. LANSOPRAZOLE [Concomitant]
     Dosage: WHILST ON THE WARD.
     Route: 048
  5. PEPTAC LIQUID [Concomitant]
     Dosage: WHILST ON THE WARD.
     Route: 048
  6. CODEINE [Concomitant]
     Dosage: 30-60MG 4 TIMES DAILY WHEN REQUIRED
     Route: 048

REACTIONS (4)
  - Liver function test abnormal [Unknown]
  - Jaundice [Unknown]
  - Vomiting [Unknown]
  - Liver disorder [Unknown]
